FAERS Safety Report 19023119 (Version 2)
Quarter: 2021Q1

REPORT INFORMATION
  Report Type: Report from Study
  Country: VN (occurrence: VN)
  Receive Date: 20210318
  Receipt Date: 20210331
  Transmission Date: 20210420
  Serious: Yes (Hospitalization)
  Sender: FDA-Public Use
  Company Number: NVSC2020VN349178

PATIENT

DRUGS (1)
  1. FRAIZERON [Suspect]
     Active Substance: SECUKINUMAB
     Indication: PRODUCT USED FOR UNKNOWN INDICATION
     Dosage: UNK, QW
     Route: 065
     Dates: start: 20201123, end: 20201225

REACTIONS (1)
  - Chest pain [Recovered/Resolved]
